FAERS Safety Report 13651022 (Version 1)
Quarter: 2017Q2

REPORT INFORMATION
  Report Type: Spontaneous
  Country: RO (occurrence: RO)
  Receive Date: 20170614
  Receipt Date: 20170614
  Transmission Date: 20170830
  Serious: Yes (Other)
  Sender: FDA-Public Use
  Company Number: RO-GLAXOSMITHKLINE-RO2015GSK094360

PATIENT
  Age: 10 Week

DRUGS (7)
  1. DEXAMETHASONE. [Suspect]
     Active Substance: DEXAMETHASONE
     Indication: COUGH
  2. CLINDAMYCIN. [Suspect]
     Active Substance: CLINDAMYCIN
     Indication: ANTIBIOTIC THERAPY
  3. DEXAMETHASONE. [Suspect]
     Active Substance: DEXAMETHASONE
     Indication: RHINORRHOEA
  4. ZINACEF [Suspect]
     Active Substance: CEFUROXIME SODIUM
     Indication: COUGH
  5. CALCIUM [Suspect]
     Active Substance: CALCIUM
     Indication: PRODUCT USED FOR UNKNOWN INDICATION
  6. ZINACEF [Suspect]
     Active Substance: CEFUROXIME SODIUM
     Indication: RHINORRHOEA
  7. HYDROCORTISONE. [Suspect]
     Active Substance: HYDROCORTISONE
     Indication: PRODUCT USED FOR UNKNOWN INDICATION

REACTIONS (18)
  - Cardiac murmur [Unknown]
  - Blood immunoglobulin G increased [Unknown]
  - Condition aggravated [Unknown]
  - Hepatocellular injury [Unknown]
  - Psychomotor hyperactivity [Unknown]
  - Food intolerance [Unknown]
  - Blood immunoglobulin A increased [Unknown]
  - Hypergammaglobulinaemia [Unknown]
  - Staphylococcal infection [Unknown]
  - Occult blood positive [Unknown]
  - Blood immunoglobulin M increased [Unknown]
  - Ichthyosis [Unknown]
  - Abnormal faeces [Unknown]
  - Drug administration error [Unknown]
  - Inflammation [Unknown]
  - Pruritus [Unknown]
  - Blood immunoglobulin E increased [Unknown]
  - Xerosis [Unknown]
